FAERS Safety Report 9240160 (Version 1)
Quarter: 2013Q2

REPORT INFORMATION
  Report Type: Spontaneous
  Country: US (occurrence: None)
  Receive Date: 20130418
  Receipt Date: 20130418
  Transmission Date: 20140414
  Serious: Yes (Disabling)
  Sender: FDA-Public Use
  Company Number: None

PATIENT
  Age: 44 Year
  Sex: Female

DRUGS (1)
  1. LEVOFLOXACIN [Suspect]
     Indication: CYSTITIS NONINFECTIVE
     Route: 048
     Dates: start: 20121129, end: 20121207

REACTIONS (4)
  - Joint swelling [None]
  - Dysstasia [None]
  - Gait disturbance [None]
  - Joint range of motion decreased [None]
